FAERS Safety Report 7681076-5 (Version None)
Quarter: 2011Q3

REPORT INFORMATION
  Report Type: 
  Country: None (occurrence: None)
  Receive Date: 20110812
  Receipt Date: 20110810
  Transmission Date: 20111222
  Serious: No
  Sender: FDA-Public Use
  Company Number: US-TEVA-295931USA

PATIENT
  Sex: Male
  Weight: 65.83 kg

DRUGS (7)
  1. HYDROCODONE [Concomitant]
  2. METOPROLOL TARTRATE [Concomitant]
  3. CARISOPRODOL [Concomitant]
  4. LORAZEPAM [Concomitant]
  5. MEDROL [Concomitant]
  6. PROAIR HFA [Suspect]
     Indication: ASTHMA
     Route: 055
  7. AZITHROMYCIN [Concomitant]

REACTIONS (1)
  - DRUG SCREEN POSITIVE [None]
